FAERS Safety Report 15724977 (Version 2)
Quarter: 2019Q1

REPORT INFORMATION
  Report Type: Spontaneous
  Country: GB (occurrence: GB)
  Receive Date: 20181214
  Receipt Date: 20190124
  Transmission Date: 20190417
  Serious: Yes (Life-Threatening, Hospitalization)
  Sender: FDA-Public Use
  Company Number: GB-MYLANLABS-2018M1093084

PATIENT
  Age: 57 Year
  Sex: Male
  Weight: 103.5 kg

DRUGS (9)
  1. LATUDA [Interacting]
     Active Substance: LURASIDONE HYDROCHLORIDE
     Indication: SCHIZOPHRENIA
     Dosage: 111 MILLIGRAM, QD
     Dates: start: 20170106
  2. COLECALCIFEROL [Concomitant]
     Active Substance: CHOLECALCIFEROL
     Dosage: UNK
  3. CLONAZEPAM. [Concomitant]
     Active Substance: CLONAZEPAM
     Dosage: UNK
  4. RIVAROXABAN [Concomitant]
     Active Substance: RIVAROXABAN
     Dosage: UNK
  5. LITHIUM CARBONATE. [Concomitant]
     Active Substance: LITHIUM CARBONATE
     Dosage: UNK
  6. CODEINE PHOSPHATE [Concomitant]
     Active Substance: CODEINE PHOSPHATE
     Dosage: UNK
  7. CLARITHROMYCIN. [Suspect]
     Active Substance: CLARITHROMYCIN
     Indication: CELLULITIS
     Dosage: 1000 MILLIGRAM, QD(CUMULATIVE DOSE AT 7000MG   )
     Route: 048
     Dates: start: 20180513, end: 20180608
  8. LATUDA [Interacting]
     Active Substance: LURASIDONE HYDROCHLORIDE
     Dosage: 111 MILLIGRAM, QD
     Route: 048
     Dates: start: 20180106
  9. VORTIOXETINE. [Concomitant]
     Active Substance: VORTIOXETINE
     Dosage: UNK

REACTIONS (3)
  - Musculoskeletal stiffness [Recovering/Resolving]
  - Neuroleptic malignant syndrome [Recovering/Resolving]
  - Drug interaction [Unknown]

NARRATIVE: CASE EVENT DATE: 20180506
